FAERS Safety Report 17917181 (Version 1)
Quarter: 2020Q2

REPORT INFORMATION
  Report Type: Spontaneous
  Country: US (occurrence: US)
  Receive Date: 20200619
  Receipt Date: 20200619
  Transmission Date: 20200714
  Serious: Yes (Other)
  Sender: FDA-Public Use
  Company Number: US-AMGEN-USASP2020095690

PATIENT
  Age: 62 Year
  Sex: Female

DRUGS (3)
  1. PROLIA [Suspect]
     Active Substance: DENOSUMAB
     Indication: OSTEOPOROSIS POSTMENOPAUSAL
     Dosage: UNK
     Route: 065
  2. EVENITY [Suspect]
     Active Substance: ROMOSOZUMAB-AQQG
     Indication: OSTEOPOROSIS POSTMENOPAUSAL
     Dosage: UNK
     Route: 065
  3. PROLIA [Suspect]
     Active Substance: DENOSUMAB

REACTIONS (12)
  - Vertigo [Unknown]
  - Drug ineffective [Unknown]
  - Spinal fusion surgery [Unknown]
  - Vertebroplasty [Unknown]
  - Joint swelling [Unknown]
  - Hyperparathyroidism [Unknown]
  - Multiple fractures [Unknown]
  - Spinal stenosis [Unknown]
  - Fall [Unknown]
  - Ligament sprain [Unknown]
  - Peripheral swelling [Unknown]
  - Osteoporosis [Unknown]

NARRATIVE: CASE EVENT DATE: 2014
